FAERS Safety Report 7306595-2 (Version None)
Quarter: 2011Q1

REPORT INFORMATION
  Report Type: 
  Country: None (occurrence: None)
  Receive Date: 20110222
  Receipt Date: 20110215
  Transmission Date: 20110831
  Serious: Yes (Hospitalization, Other)
  Sender: FDA-Public Use
  Company Number: JP-CEPHALON-2011000816

PATIENT
  Sex: Male

DRUGS (2)
  1. BENDAMUSTINE HCL (MANUFACTURER UNKNOWN) [Suspect]
     Indication: B-CELL LYMPHOMA
     Route: 041
     Dates: start: 20110120
  2. FILGRASTIM [Concomitant]

REACTIONS (1)
  - BONE MARROW FAILURE [None]
